FAERS Safety Report 9247903 (Version 1)
Quarter: 2013Q2

REPORT INFORMATION
  Report Type: Spontaneous
  Country: US (occurrence: US)
  Receive Date: 20130423
  Receipt Date: 20130423
  Transmission Date: 20140414
  Serious: Yes (Hospitalization, Other)
  Sender: FDA-Public Use
  Company Number: US201012003194

PATIENT
  Age: 65 Year
  Sex: Female
  Weight: 126.08 kg

DRUGS (24)
  1. BYETTA PEN DISPOSABLE [Suspect]
     Indication: TYPE 2 DIABETES MELLITUS
     Route: 065
     Dates: start: 20070626, end: 20070807
  2. BYETTA PEN DISPOSABLE [Suspect]
     Indication: TYPE 2 DIABETES MELLITUS
     Route: 058
     Dates: start: 20070726
  3. BYETTA PEN DISPOSABLE [Suspect]
     Indication: TYPE 2 DIABETES MELLITUS
     Route: 058
     Dates: start: 20101209
  4. EXENATIDE 10MCG PEN, DISPOSABLE DEVICE [Concomitant]
  5. VICTOZA [Concomitant]
     Indication: TYPE 2 DIABETES MELLITUS
     Route: 058
  6. VICTOZA [Concomitant]
     Indication: TYPE 2 DIABETES MELLITUS
     Route: 058
  7. VICTOZA [Concomitant]
     Indication: TYPE 2 DIABETES MELLITUS
     Route: 058
     Dates: end: 20101208
  8. LISINOPRIL [Concomitant]
     Route: 048
  9. SYNTHROID [Concomitant]
     Route: 048
     Dates: start: 20080211
  10. CALCIUM CARBONATE + COLECALCIFEROL [Concomitant]
     Route: 048
     Dates: start: 20070626
  11. MULTIVITAMIN [Concomitant]
     Route: 048
  12. METOPROLOL TARTRATE [Concomitant]
     Route: 048
     Dates: start: 20090310
  13. FUROSEMIDE [Concomitant]
     Route: 048
     Dates: start: 200902
  14. LEXAPRO [Concomitant]
     Route: 048
     Dates: start: 20080908
  15. LEXAPRO [Concomitant]
  16. KLOR-CON [Concomitant]
     Route: 048
     Dates: start: 20090310
  17. ASPIRIN [Concomitant]
     Route: 048
     Dates: start: 200902
  18. COLACE [Concomitant]
  19. OMEPRAZOLE [Concomitant]
     Indication: GASTROOESOPHAGEAL REFLUX DISEASE
     Route: 048
  20. CLINDAMYCIN [Concomitant]
  21. CRESTOR [Concomitant]
     Route: 048
     Dates: start: 20091116
  22. IRON [Concomitant]
     Route: 048
     Dates: start: 20081030
  23. NASONEX [Concomitant]
     Route: 045
     Dates: start: 20091113
  24. POTASSIUM [Concomitant]

REACTIONS (18)
  - Myocardial infarction [Recovered/Resolved]
  - Syncope [Recovered/Resolved]
  - Aortic valve disease [Recovered/Resolved]
  - Sleep apnoea syndrome [Not Recovered/Not Resolved]
  - Ovarian cancer stage IV [Not Recovered/Not Resolved]
  - Fatigue [Recovered/Resolved]
  - Anaemia [Unknown]
  - Constipation [Unknown]
  - Dysphagia [Not Recovered/Not Resolved]
  - Hiatus hernia [Not Recovered/Not Resolved]
  - Gastrooesophageal reflux disease [Not Recovered/Not Resolved]
  - Visual impairment [Recovered/Resolved]
  - Cataract operation [Recovered/Resolved]
  - Cataract operation [Recovered/Resolved]
  - Injection site pain [Recovered/Resolved]
  - Endodontic procedure [Unknown]
  - Nausea [Unknown]
  - Hypoaesthesia [Unknown]
